FAERS Safety Report 6604488 (Version 3)
Quarter: 2013Q4

REPORT INFORMATION
  Report Type: Spontaneous
  Country: US (occurrence: US)
  Receive Date: 20080402
  Receipt Date: 20131213
  Transmission Date: 20140711
  Serious: Yes (Congenital Anomaly)
  Sender: FDA-Public Use
  Company Number: US-PFIZER INC-2008028107

PATIENT
  Sex: Female
  Weight: 3.03 kg

DRUGS (3)
  1. VIRACEPT [Suspect]
     Indication: HIV INFECTION
     Dosage: 2500 MG, DAILY
     Route: 064
     Dates: end: 20080115
  2. LAMIVUDINE/ZIDOVUDINE [Suspect]
     Indication: HIV INFECTION
     Dosage: 2 TABLETS DAILY
     Route: 064
  3. KALETRA [Suspect]
     Indication: HIV INFECTION
     Dosage: 2, UNK
     Route: 064
     Dates: start: 20080115

REACTIONS (3)
  - Maternal exposure during pregnancy [Unknown]
  - Pyelocaliectasis [Unknown]
  - Alpha 1 foetoprotein amniotic fluid increased [Unknown]
